FAERS Safety Report 7004995-1 (Version None)
Quarter: 2010Q3

REPORT INFORMATION
  Report Type: 
  Country: None (occurrence: None)
  Receive Date: 20100917
  Receipt Date: 20100908
  Transmission Date: 20110219
  Serious: Yes (Hospitalization)
  Sender: FDA-Public Use
  Company Number: 2010EU004786

PATIENT
  Age: 76 Year
  Sex: Female

DRUGS (10)
  1. VESICARE [Suspect]
     Dosage: 5 MG, ORAL
     Route: 048
     Dates: start: 20100601, end: 20100717
  2. ENALAPRIL-RATIOPHARM (ENALAPRIL MALEATE) [Suspect]
     Dosage: ORAL
     Route: 048
     Dates: end: 20100717
  3. MINIRIN [Suspect]
     Dosage: ORAL
     Route: 048
     Dates: start: 20100601, end: 20100717
  4. CITALOPRAM HYDROBROMIDE [Suspect]
     Indication: DEPRESSION
     Dosage: 20 MG, ORAL
     Route: 048
     Dates: end: 20100717
  5. VAGIFEM [Concomitant]
  6. ALENDRONATE SODIUM [Concomitant]
  7. NEBCIN [Concomitant]
  8. NICOTINELL (NICOTINE) [Concomitant]
  9. CALCICHEW-D3 (CALCIUM CARBONATE, COLECALCIFEROL) [Concomitant]
  10. ACETAMINOPHEN [Concomitant]

REACTIONS (3)
  - FALL [None]
  - HAEMATOMA [None]
  - HYPONATRAEMIA [None]
